FAERS Safety Report 20479825 (Version 1)
Quarter: 2022Q1

REPORT INFORMATION
  Report Type: Spontaneous
  Country: TR (occurrence: TR)
  Receive Date: 20220216
  Receipt Date: 20220216
  Transmission Date: 20220423
  Serious: Yes (Other)
  Sender: FDA-Public Use
  Company Number: TR-MSNLABS-2022MSNLIT00114

PATIENT

DRUGS (1)
  1. PREGABALIN [Suspect]
     Active Substance: PREGABALIN
     Indication: Cervical radiculopathy
     Route: 065

REACTIONS (1)
  - Chorioretinopathy [Unknown]
